FAERS Safety Report 8235444-3 (Version None)
Quarter: 2012Q1

REPORT INFORMATION
  Report Type: 
  Country: None (occurrence: None)
  Receive Date: 20120326
  Receipt Date: 20120322
  Transmission Date: 20120608
  Serious: Yes (Death)
  Sender: FDA-Public Use
  Company Number: PHHY2012AT025308

PATIENT
  Age: 78 Year
  Sex: Male
  Weight: 90 kg

DRUGS (2)
  1. METHOTREXATE [Suspect]
     Indication: POLYMYOSITIS
     Dosage: 10 MG, QW
     Dates: end: 20120307
  2. NOVALGIN TROPFEN [Suspect]
     Dosage: 20 DRP, 2 TO 3 TWICE DAILY AS NEEDED
     Route: 048
     Dates: end: 20120307

REACTIONS (2)
  - PANCYTOPENIA [None]
  - AGRANULOCYTOSIS [None]
